FAERS Safety Report 18264049 (Version 2)
Quarter: 2020Q3

REPORT INFORMATION
  Report Type: Spontaneous
  Country: US (occurrence: US)
  Receive Date: 20200914
  Receipt Date: 20200918
  Transmission Date: 20201103
  Serious: No
  Sender: FDA-Public Use
  Company Number: US-PFIZER INC-2020348195

PATIENT
  Age: 76 Year
  Sex: Female
  Weight: 89.36 kg

DRUGS (2)
  1. XGEVA [Concomitant]
     Active Substance: DENOSUMAB
     Indication: CALCIUM DEFICIENCY
     Dosage: UNK, MONTHLY (ONCE)
  2. IBRANCE [Suspect]
     Active Substance: PALBOCICLIB
     Indication: BREAST CANCER METASTATIC
     Dosage: 125 MG, CYCLIC (1 HARD TABLET DAILY BY MOUTH FOR 21 DAYS FOR 3 WEEKS AND OFF 1 WEEK)
     Route: 048
     Dates: start: 2017

REACTIONS (3)
  - Feeling abnormal [Not Recovered/Not Resolved]
  - Poor quality product administered [Not Recovered/Not Resolved]
  - Product quality issue [Not Recovered/Not Resolved]

NARRATIVE: CASE EVENT DATE: 20200908
